FAERS Safety Report 9041588 (Version 1)
Quarter: 2013Q1

REPORT INFORMATION
  Report Type: Spontaneous
  Country: US (occurrence: US)
  Receive Date: 20130129
  Receipt Date: 20130129
  Transmission Date: 20140127
  Serious: No
  Sender: FDA-Public Use
  Company Number: US-ABBOTT-12P-163-0900103-00

PATIENT
  Sex: Female
  Weight: 59.02 kg

DRUGS (8)
  1. HUMIRA 40 MG/0.8 ML PEN [Suspect]
     Indication: PSORIASIS
     Route: 058
     Dates: start: 2007
  2. AMLODIPINE [Concomitant]
     Indication: HYPERTENSION
  3. OMEPRAZOLE [Concomitant]
     Indication: GASTROOESOPHAGEAL REFLUX DISEASE
  4. RANITIDINE [Concomitant]
     Indication: GASTROOESOPHAGEAL REFLUX DISEASE
  5. AMBIEN CR [Concomitant]
     Indication: SLEEP DISORDER
  6. DETROL LA [Concomitant]
     Indication: POLLAKIURIA
  7. PREDNISONE [Concomitant]
     Indication: PAROPHTHALMIA
  8. TYLENOL [Concomitant]
     Indication: ARTHRALGIA
     Dosage: AS REQUIRED

REACTIONS (3)
  - Parophthalmia [Not Recovered/Not Resolved]
  - Eye swelling [Not Recovered/Not Resolved]
  - Eye pain [Not Recovered/Not Resolved]
